FAERS Safety Report 6909540-4 (Version None)
Quarter: 2010Q3

REPORT INFORMATION
  Report Type: 
  Country: None (occurrence: None)
  Receive Date: 20100805
  Receipt Date: 20100727
  Transmission Date: 20110219
  Serious: Yes (Congenital Anomaly)
  Sender: FDA-Public Use
  Company Number: BR-B.I. PHARMACEUTICALS,INC./RIDGEFIELD-2010-BP-08511BP

PATIENT
  Sex: Female
  Weight: 3.2 kg

DRUGS (7)
  1. VIRAMUNE [Suspect]
     Indication: DRUG EXPOSURE DURING PREGNANCY
     Route: 064
     Dates: start: 20040215, end: 20040613
  2. VIRAMUNE [Suspect]
     Route: 064
     Dates: start: 20040131, end: 20040214
  3. FERROUS FUMARATE [Concomitant]
  4. TOBACCO [Concomitant]
  5. VIDEX [Concomitant]
     Indication: DRUG EXPOSURE DURING PREGNANCY
     Route: 064
     Dates: start: 20040612, end: 20040613
  6. COMBIVIR [Concomitant]
     Indication: DRUG EXPOSURE DURING PREGNANCY
     Route: 064
     Dates: start: 20040131, end: 20040613
  7. RETROVIR [Concomitant]
     Indication: DRUG EXPOSURE DURING PREGNANCY
     Route: 064
     Dates: start: 20040612, end: 20040613

REACTIONS (1)
  - KNEE DEFORMITY [None]
